FAERS Safety Report 4449410-7 (Version None)
Quarter: 2004Q3

REPORT INFORMATION
  Report Type: 
  Country: None (occurrence: None)
  Receive Date: 20040910
  Receipt Date: 20040901
  Transmission Date: 20050211
  Serious: Yes (Death)
  Sender: FDA-Public Use
  Company Number: B0344318A

PATIENT
  Sex: Female

DRUGS (2)
  1. ALKERAN [Suspect]
     Indication: PANCREATIC CARCINOMA
     Dosage: INTRAVENOUS
     Route: 042
  2. MITOMYCIN [Suspect]
     Indication: PANCREATIC CARCINOMA
     Dosage: INTRAVENOUS
     Route: 042

REACTIONS (5)
  - BILE DUCT OBSTRUCTION [None]
  - HEPATIC FAILURE [None]
  - NEOPLASM PROGRESSION [None]
  - NEUTROPENIA [None]
  - OVERDOSE [None]
